FAERS Safety Report 9625721 (Version 1)
Quarter: 2013Q4

REPORT INFORMATION
  Report Type: Spontaneous
  Country: US (occurrence: None)
  Receive Date: 20131015
  Receipt Date: 20131015
  Transmission Date: 20140711
  Serious: Yes (Other)
  Sender: FDA-Public Use
  Company Number: None

PATIENT
  Age: 30 Year
  Sex: Female
  Weight: 90.72 kg

DRUGS (1)
  1. METRONIDAZOLE 500 MG / 100 ML INTRAVENOUS INFUSION [Suspect]
     Indication: LICHEN PLANUS
     Dosage: 500 MG.TAB.
     Route: 048
     Dates: start: 20130922, end: 20131010

REACTIONS (5)
  - Anxiety [None]
  - Paraesthesia [None]
  - Flushing [None]
  - Dizziness [None]
  - Hyperventilation [None]
